FAERS Safety Report 8884860 (Version 1)
Quarter: 2012Q4

REPORT INFORMATION
  Report Type: 
  Country: US (occurrence: US)
  Receive Date: 20121105
  Receipt Date: 20121105
  Transmission Date: 20130627
  Serious: No
  Sender: FDA-Public Use
  Company Number: US-009507513-1210USA009946

PATIENT
  Sex: Female

DRUGS (1)
  1. AZASITE [Suspect]
     Indication: DRY EYE
     Dosage: 1 DF, prn
     Route: 061
     Dates: start: 2012

REACTIONS (2)
  - Burning sensation [Unknown]
  - Wrong technique in drug usage process [Unknown]
